FAERS Safety Report 7480384-0 (Version None)
Quarter: 2011Q2

REPORT INFORMATION
  Report Type: 
  Country: None (occurrence: None)
  Receive Date: 20110504
  Receipt Date: 20110427
  Transmission Date: 20111010
  Serious: Yes (Death, Hospitalization)
  Sender: FDA-Public Use
  Company Number: DKLU1062256

PATIENT
  Age: 12 Year
  Sex: Male
  Weight: 20.9 kg

DRUGS (21)
  1. ALBUTERAL (SALBUTAMOL) [Concomitant]
  2. BENZODIAZEPINE (BENZODIAZEPINE SERIVATIVES) [Concomitant]
  3. SABRIL [Suspect]
     Indication: COMPLEX PARTIAL SEIZURES
     Dosage: SEE IMAGE, ORAL
     Dates: start: 20110201
  4. SABRIL [Suspect]
     Indication: COMPLEX PARTIAL SEIZURES
     Dosage: SEE IMAGE, ORAL
     Dates: start: 20110201
  5. SABRIL [Suspect]
     Indication: COMPLEX PARTIAL SEIZURES
     Dosage: SEE IMAGE, ORAL
     Dates: start: 20100428, end: 20110201
  6. SABRIL [Suspect]
     Indication: COMPLEX PARTIAL SEIZURES
     Dosage: SEE IMAGE, ORAL
     Dates: start: 20100421, end: 20110201
  7. SABRIL [Suspect]
     Indication: COMPLEX PARTIAL SEIZURES
     Dosage: SEE IMAGE, ORAL
     Dates: start: 20110201
  8. MELATONIN [Concomitant]
  9. SCOPOLAMINE [Concomitant]
  10. DIASTAT [Concomitant]
  11. VIMPAT [Concomitant]
  12. ZONEGRAN [Concomitant]
  13. CITRACAL (CALCIUM CITRATE) [Concomitant]
  14. PHENYTOIN [Concomitant]
  15. KEPPRA [Concomitant]
  16. PULMOZYME [Concomitant]
  17. LORAZEPAM [Concomitant]
  18. VALPROIC ACID [Concomitant]
  19. TOPAMAX [Concomitant]
  20. POLYVISOL (MULVIT) [Concomitant]
  21. MIRALAX [Concomitant]

REACTIONS (10)
  - RESPIRATORY DISTRESS [None]
  - CONDITION AGGRAVATED [None]
  - EYE MOVEMENT DISORDER [None]
  - FOREIGN BODY [None]
  - AGITATION [None]
  - CONVULSION [None]
  - MOOD ALTERED [None]
  - PNEUMONIA [None]
  - MOVEMENT DISORDER [None]
  - AKATHISIA [None]
